FAERS Safety Report 25946011 (Version 2)
Quarter: 2025Q4

REPORT INFORMATION
  Report Type: Report from Study
  Country: EU (occurrence: EU)
  Receive Date: 20251021
  Receipt Date: 20251129
  Transmission Date: 20260118
  Serious: Yes (Hospitalization)
  Sender: ABBVIE
  Company Number: EU-ABBVIE-6509017

PATIENT
  Age: 76 Year
  Sex: Female
  Weight: 51 kg

DRUGS (4)
  1. FOSCARBIDOPA\FOSLEVODOPA [Suspect]
     Active Substance: FOSCARBIDOPA\FOSLEVODOPA
     Indication: Parkinson^s disease
     Dosage: DURATION OF THE DAILY INFUSION: 24 HOUR, BASIC FLOW: 0.29 ML/H DURATION: 16. HOURS IN MORNING  AN...
     Route: 058
     Dates: start: 20250520
  2. PRAMIPEXOLE [Concomitant]
     Active Substance: PRAMIPEXOLE
     Indication: Parkinson^s disease
     Dosage: CONTINUOUS TREATMENT?DAILY DOSE: 1.05
     Dates: start: 2014
  3. BENSERAZIDE HYDROCHLORIDE\LEVODOPA [Concomitant]
     Active Substance: BENSERAZIDE HYDROCHLORIDE\LEVODOPA
     Indication: Parkinson^s disease
     Dosage: CONTINUOUS TREATMENT?DAILY DOSE: 187.5
     Dates: start: 2014
  4. MIRTAZAPINE [Concomitant]
     Active Substance: MIRTAZAPINE
     Indication: Parkinson^s disease
     Dosage: CONTINUOUS TREATMENT?DAILY DOSE: 15
     Dates: start: 20201120

REACTIONS (2)
  - Fracture pain [Recovering/Resolving]
  - Pelvic fracture [Recovering/Resolving]

NARRATIVE: CASE EVENT DATE: 20251007
